FAERS Safety Report 4552059-9 (Version None)
Quarter: 2005Q1

REPORT INFORMATION
  Report Type: 
  Country: None (occurrence: None)
  Receive Date: 20050112
  Receipt Date: 20041229
  Transmission Date: 20050727
  Serious: Yes (Hospitalization)
  Sender: FDA-Public Use
  Company Number: USA041287151

PATIENT
  Age: 76 Year
  Sex: Female

DRUGS (3)
  1. EVISTA [Suspect]
     Indication: BREAST CANCER
     Dates: start: 20000101, end: 20041101
  2. EVISTA [Suspect]
     Indication: PROPHYLAXIS
     Dates: start: 20000101, end: 20041101
  3. FORTEO [Concomitant]

REACTIONS (2)
  - BONE GRAFT [None]
  - OSTEOPOROSIS [None]
